FAERS Safety Report 7413118-6 (Version None)
Quarter: 2011Q2

REPORT INFORMATION
  Report Type: 
  Country: None (occurrence: None)
  Receive Date: 20110413
  Receipt Date: 20110404
  Transmission Date: 20111010
  Serious: Yes (Death)
  Sender: FDA-Public Use
  Company Number: JP-AMGEN-JPNCT2011009995

PATIENT
  Age: 56 Year
  Sex: Male
  Weight: 109 kg

DRUGS (21)
  1. BAYSLOWTH [Concomitant]
  2. DIOVAN [Concomitant]
     Dosage: 80 MG, QD
  3. CALCIUM LEVOFOLINATE [Concomitant]
     Indication: COLORECTAL CANCER
     Dosage: UNK
     Route: 041
     Dates: start: 20101019, end: 20110128
  4. PANITUMUMAB [Suspect]
     Dosage: 6 MG/KG, Q2WK
     Route: 041
     Dates: start: 20101215, end: 20101215
  5. KERABENS [Concomitant]
     Route: 062
  6. MINOMYCIN [Concomitant]
     Route: 048
  7. AMLODIN [Concomitant]
     Dosage: 5 MG, QD
     Route: 048
  8. MEVATORTE [Concomitant]
     Dosage: 10 MG, QD
     Route: 048
  9. PANITUMUMAB [Suspect]
     Indication: COLORECTAL CANCER METASTATIC
     Dosage: 6 MG/KG, Q2WK
     Route: 041
     Dates: start: 20101018, end: 20101122
  10. OXALIPLATIN [Concomitant]
     Indication: COLORECTAL CANCER
     Dosage: 170 MG, Q2WK
     Route: 041
     Dates: start: 20101019, end: 20110128
  11. CORTICOSTEROIDS [Concomitant]
     Indication: PROPHYLAXIS
     Route: 065
  12. CALCIUM LEVOFOLINATE [Concomitant]
     Route: 041
     Dates: start: 20101019, end: 20110128
  13. ANTIHISTAMINES [Concomitant]
     Indication: PROPHYLAXIS
     Route: 065
  14. FLUOROURACIL [Concomitant]
     Route: 041
     Dates: start: 20101019, end: 20110128
  15. DERMOSOL [Concomitant]
     Route: 062
  16. KETOBUN [Concomitant]
     Route: 048
  17. PANITUMUMAB [Suspect]
     Dosage: 6 MG/KG, Q2WK
     Route: 041
     Dates: start: 20110126, end: 20110126
  18. FOLIROMIN [Concomitant]
     Dosage: 1 DF, QD
     Route: 048
  19. OXALIPLATIN [Concomitant]
     Route: 041
     Dates: start: 20101019, end: 20110128
  20. FLUOROURACIL [Concomitant]
     Indication: COLORECTAL CANCER
     Dosage: 800 MG, UNK
     Route: 040
     Dates: start: 20101019, end: 20110128
  21. NOVOLIN R [Concomitant]
     Route: 042

REACTIONS (3)
  - MYOCARDIAL ISCHAEMIA [None]
  - DRY SKIN [None]
  - DERMATITIS ACNEIFORM [None]
